FAERS Safety Report 20858164 (Version 2)
Quarter: 2022Q3

REPORT INFORMATION
  Report Type: Spontaneous
  Country: US (occurrence: US)
  Receive Date: 20220521
  Receipt Date: 20220725
  Transmission Date: 20221026
  Serious: No
  Sender: FDA-Public Use
  Company Number: US-BRISTOL-MYERS SQUIBB COMPANY-2022-020058

PATIENT
  Age: 32 Year
  Sex: Female

DRUGS (1)
  1. THALOMID [Suspect]
     Active Substance: THALIDOMIDE
     Indication: Stomatitis
     Route: 048
     Dates: start: 202203

REACTIONS (4)
  - Fatigue [Unknown]
  - Intentional product use issue [Unknown]
  - Feeling abnormal [Unknown]
  - Fatigue [Unknown]
